FAERS Safety Report 20927912 (Version 1)
Quarter: 2022Q2

REPORT INFORMATION
  Report Type: Spontaneous
  Country: US (occurrence: US)
  Receive Date: 20220607
  Receipt Date: 20220607
  Transmission Date: 20220721
  Serious: Yes (Hospitalization)
  Sender: FDA-Public Use
  Company Number: US-BAYER-2022A077961

PATIENT
  Age: 71 Year
  Sex: Female

DRUGS (1)
  1. XARELTO [Suspect]
     Active Substance: RIVAROXABAN
     Indication: Product used for unknown indication
     Dosage: 20 MG DAILY
     Route: 048

REACTIONS (4)
  - Post procedural haematoma [Unknown]
  - Hypotension [Unknown]
  - Tachycardia [Unknown]
  - Haemoglobin decreased [Unknown]
